FAERS Safety Report 5764572-7 (Version None)
Quarter: 2008Q2

REPORT INFORMATION
  Report Type: 
  Country: None (occurrence: None)
  Receive Date: 20080610
  Receipt Date: 20080605
  Transmission Date: 20081010
  Serious: Yes (Other)
  Sender: FDA-Public Use
  Company Number: GB-PFIZER INC-2008047796

PATIENT
  Sex: Male

DRUGS (5)
  1. XALATAN [Suspect]
     Indication: GLAUCOMA
  2. LANSOPRAZOLE [Concomitant]
  3. ASPIRIN [Concomitant]
     Route: 048
  4. BUMETANIDE [Concomitant]
     Route: 048
  5. CLOPIDOGREL [Concomitant]
     Route: 048

REACTIONS (1)
  - ANGINA PECTORIS [None]
